FAERS Safety Report 6334501-6 (Version None)
Quarter: 2009Q3

REPORT INFORMATION
  Report Type: 
  Country: None (occurrence: None)
  Receive Date: 20090826
  Receipt Date: 20090814
  Transmission Date: 20100115
  Serious: Yes (Other)
  Sender: FDA-Public Use
  Company Number: 2009AP003326

PATIENT
  Age: 39 Year
  Sex: Female

DRUGS (2)
  1. CYCLOSPORINE [Suspect]
  2. RIFAMPICIN [Suspect]

REACTIONS (3)
  - BLOOD CREATININE INCREASED [None]
  - MICROANGIOPATHIC HAEMOLYTIC ANAEMIA [None]
  - THERAPEUTIC AGENT TOXICITY [None]
